FAERS Safety Report 8026982 (Version 3)
Quarter: 2012Q4

REPORT INFORMATION
  Report Type: 
  Country: US (occurrence: US)
  Receive Date: 20110708
  Receipt Date: 20121011
  Transmission Date: 20130627
  Serious: Yes (Hospitalization)
  Sender: FDA-Public Use
  Company Number: US-B.I. PHARMACEUTICALS,INC./RIDGEFIELD-2011-BP-16037BP

PATIENT
  Age: 69 Year
  Sex: Female

DRUGS (15)
  1. PRADAXA [Suspect]
     Indication: ATRIAL FIBRILLATION
     Dosage: 300 mg
     Route: 048
     Dates: start: 20110415, end: 20110523
  2. VERAPAMIL [Concomitant]
     Indication: BLOOD PRESSURE
     Dosage: 360 mg
  3. METOPROLOL [Concomitant]
     Indication: BLOOD PRESSURE
     Dosage: 150 mg
  4. FUROSEMIDE [Concomitant]
     Indication: CARDIAC FAILURE CONGESTIVE
     Dosage: 20 mg
  5. LOSARTIN [Concomitant]
     Indication: PROPHYLAXIS
     Dosage: 25 mg
  6. LIPITOR [Concomitant]
     Indication: BLOOD CHOLESTEROL INCREASED
     Dosage: 10 mg
  7. TRICOR [Concomitant]
     Indication: BLOOD CHOLESTEROL INCREASED
     Dosage: 145 mg
  8. AVENDIA [Concomitant]
     Indication: GLUCOSE TOLERANCE IMPAIRED
     Dosage: 4 mg
  9. DIGOXIN [Concomitant]
     Indication: CARDIAC FAILURE CONGESTIVE
     Dosage: 125 mg
  10. METHOTREXATE [Concomitant]
     Indication: RHEUMATOID ARTHRITIS
  11. REMACAID [Concomitant]
     Indication: RHEUMATOID ARTHRITIS
  12. FOLIC ACID [Concomitant]
     Indication: PROPHYLAXIS
  13. CALCITRATE [Concomitant]
     Indication: PROPHYLAXIS
  14. FISH OIL [Concomitant]
     Indication: BLOOD CHOLESTEROL INCREASED
  15. GLUCOSAMINE [Concomitant]
     Indication: RHEUMATOID ARTHRITIS

REACTIONS (3)
  - Ulcer haemorrhage [Recovered/Resolved]
  - Urticaria [Recovered/Resolved]
  - Dyspnoea [Recovered/Resolved]
